FAERS Safety Report 25450310 (Version 1)
Quarter: 2025Q2

REPORT INFORMATION
  Report Type: Spontaneous
  Country: US (occurrence: None)
  Receive Date: 20250610
  Receipt Date: 20250610
  Transmission Date: 20250717
  Serious: No
  Sender: FDA-CTU
  Company Number: None

PATIENT

DRUGS (1)
  1. OCREVUS [Suspect]
     Active Substance: OCRELIZUMAB

REACTIONS (7)
  - Throat irritation [None]
  - Dysphagia [None]
  - Oxygen saturation decreased [None]
  - Blood pressure increased [None]
  - Chest discomfort [None]
  - Muscle tightness [None]
  - Heart rate increased [None]
